FAERS Safety Report 16212445 (Version 1)
Quarter: 2019Q2

REPORT INFORMATION
  Report Type: Spontaneous
  Country: US (occurrence: US)
  Receive Date: 20190418
  Receipt Date: 20190418
  Transmission Date: 20190711
  Serious: No
  Sender: FDA-Public Use
  Company Number: US-PFIZER INC-2019159920

PATIENT
  Age: 71 Year
  Sex: Male
  Weight: 94.35 kg

DRUGS (1)
  1. REVATIO [Suspect]
     Active Substance: SILDENAFIL CITRATE
     Indication: SEXUAL DYSFUNCTION
     Dosage: 20 MG, UNK (ONE TO 3 PILLS)

REACTIONS (2)
  - Product use in unapproved indication [Unknown]
  - Dizziness [Unknown]
